FAERS Safety Report 8604366-8 (Version None)
Quarter: 2012Q3

REPORT INFORMATION
  Report Type: 
  Country: None (occurrence: None)
  Receive Date: 20120820
  Receipt Date: 20120809
  Transmission Date: 20120928
  Serious: Yes (Hospitalization)
  Sender: FDA-Public Use
  Company Number: US-BAYER-2012-082516

PATIENT
  Age: 45 Year
  Sex: Female
  Weight: 105.67 kg

DRUGS (2)
  1. ANTIBIOTICS [Concomitant]
     Indication: CELLULITIS
     Route: 042
  2. YASMIN [Suspect]
     Indication: MENOMETRORRHAGIA

REACTIONS (1)
  - THROMBOPHLEBITIS SUPERFICIAL [None]
